FAERS Safety Report 11062382 (Version 1)
Quarter: 2015Q2

REPORT INFORMATION
  Report Type: Spontaneous
  Country: US (occurrence: US)
  Receive Date: 20150424
  Receipt Date: 20150424
  Transmission Date: 20150821
  Serious: Yes (Hospitalization)
  Sender: FDA-Public Use
  Company Number: US-ALKERMES INC.-ALK-2015-004281

PATIENT

DRUGS (1)
  1. VIVITROL [Suspect]
     Active Substance: NALTREXONE
     Indication: DRUG DEPENDENCE
     Dosage: 380 MG, QMO
     Route: 030
     Dates: start: 20150216, end: 20150216

REACTIONS (12)
  - Injection site erythema [Recovering/Resolving]
  - Injection site rash [Recovering/Resolving]
  - Dyspnoea [Recovering/Resolving]
  - Peripheral swelling [Recovering/Resolving]
  - Injection site pruritus [Recovering/Resolving]
  - Swelling face [Recovering/Resolving]
  - Hypersensitivity [Recovering/Resolving]
  - Pharyngeal oedema [Recovering/Resolving]
  - Injection site reaction [Recovering/Resolving]
  - Rash [Recovering/Resolving]
  - Swollen tongue [Recovering/Resolving]
  - Injection site mass [Recovering/Resolving]

NARRATIVE: CASE EVENT DATE: 20150220
